FAERS Safety Report 21227923 (Version 2)
Quarter: 2022Q3

REPORT INFORMATION
  Report Type: Spontaneous
  Country: AR (occurrence: AR)
  Receive Date: 20220818
  Receipt Date: 20220826
  Transmission Date: 20221027
  Serious: Yes (Other)
  Sender: FDA-Public Use
  Company Number: AR-009507513-2208ARG005905

PATIENT
  Age: 15 Year
  Sex: Female

DRUGS (3)
  1. PEMBROLIZUMAB [Suspect]
     Active Substance: PEMBROLIZUMAB
     Indication: Cerebellar tumour
     Dosage: 140 MILLIGRAM
  2. PEMBROLIZUMAB [Suspect]
     Active Substance: PEMBROLIZUMAB
     Dosage: 100 MILLIGRAM
  3. PALBOCICLIB [Concomitant]
     Active Substance: PALBOCICLIB
     Indication: Cerebellar tumour

REACTIONS (10)
  - Tumour pseudoprogression [Unknown]
  - Facial paralysis [Unknown]
  - Pneumonia aspiration [Unknown]
  - Corneal transplant [Unknown]
  - Dysphagia [Unknown]
  - Ataxia [Unknown]
  - Underweight [Unknown]
  - Inflammation [Unknown]
  - Off label use [Unknown]
  - Incorrect dose administered [Unknown]
